FAERS Safety Report 5578947-2 (Version None)
Quarter: 2008Q1

REPORT INFORMATION
  Report Type: 
  Country: None (occurrence: None)
  Receive Date: 20080102
  Receipt Date: 20071219
  Transmission Date: 20080703
  Serious: Yes (Hospitalization)
  Sender: FDA-Public Use
  Company Number: ES-AMGEN-US158450

PATIENT
  Age: 55 Year
  Sex: Male

DRUGS (6)
  1. ENBREL [Suspect]
     Indication: RHEUMATOID ARTHRITIS
     Route: 058
  2. ISONIAZID [Interacting]
     Indication: LATENT TUBERCULOSIS
  3. PYRIDOXINE [Concomitant]
     Indication: LATENT TUBERCULOSIS
  4. OMEPRAZOLE [Concomitant]
  5. PIROXICAM [Concomitant]
     Indication: RHEUMATOID ARTHRITIS
  6. DEFLAZACORT [Concomitant]
     Indication: RHEUMATOID ARTHRITIS
     Dosage: DOSE AND FREQUENCY NOT SPECIFIED

REACTIONS (2)
  - DRUG INTERACTION [None]
  - OPTIC NEURITIS [None]
